FAERS Safety Report 5863486-1 (Version None)
Quarter: 2008Q3

REPORT INFORMATION
  Report Type: 
  Country: None (occurrence: None)
  Receive Date: 20080828
  Receipt Date: 20080820
  Transmission Date: 20090109
  Serious: Yes (Hospitalization)
  Sender: FDA-Public Use
  Company Number: DE-CELGENEUS-062-21880-08080980

PATIENT
  Age: 49 Year
  Sex: Male

DRUGS (3)
  1. REVLIMID [Suspect]
     Indication: PLASMACYTOMA
     Dates: start: 20080729
  2. REVLIMID [Suspect]
     Indication: NEOPLASM PROGRESSION
  3. REVLIMID [Suspect]

REACTIONS (3)
  - ACUTE GRAFT VERSUS HOST DISEASE IN SKIN [None]
  - CONDITION AGGRAVATED [None]
  - STOMATITIS [None]
